FAERS Safety Report 11213510 (Version 3)
Quarter: 2015Q3

REPORT INFORMATION
  Report Type: Spontaneous
  Country: BR (occurrence: BR)
  Receive Date: 20150623
  Receipt Date: 20150804
  Transmission Date: 20151125
  Serious: Yes (Other)
  Sender: FDA-Public Use
  Company Number: PHHY2015BR075251

PATIENT
  Age: 49 Year
  Sex: Male
  Weight: 69 kg

DRUGS (3)
  1. CATAFLAM [Suspect]
     Active Substance: DICLOFENAC POTASSIUM
     Indication: ANTIINFLAMMATORY THERAPY
     Dosage: (Q6H OR Q8H)
     Route: 048
     Dates: start: 1992
  2. CATAFLAM [Suspect]
     Active Substance: DICLOFENAC POTASSIUM
     Indication: MYALGIA
     Dosage: UNK, QD
     Route: 061
     Dates: start: 1985
  3. CATAFLAMPRO EMULGEL [Suspect]
     Active Substance: DICLOFENAC DIETHYLAMINE
     Indication: MYALGIA
     Dosage: UNK, QD
     Route: 061
     Dates: start: 201501

REACTIONS (14)
  - Humerus fracture [Recovering/Resolving]
  - Arthralgia [Unknown]
  - Musculoskeletal pain [Unknown]
  - Joint swelling [Recovering/Resolving]
  - Muscle strain [Unknown]
  - Papule [Recovering/Resolving]
  - Application site pruritus [Recovering/Resolving]
  - Application site erythema [Recovering/Resolving]
  - Drug hypersensitivity [Unknown]
  - Lower limb fracture [Recovering/Resolving]
  - Road traffic accident [Recovering/Resolving]
  - Tendon pain [Recovering/Resolving]
  - Application site hypersensitivity [Recovering/Resolving]
  - Ligament pain [Recovering/Resolving]

NARRATIVE: CASE EVENT DATE: 1992
